FAERS Safety Report 8535195-1 (Version None)
Quarter: 2012Q3

REPORT INFORMATION
  Report Type: 
  Country: None (occurrence: None)
  Receive Date: 20120724
  Receipt Date: 20120703
  Transmission Date: 20120928
  Serious: Yes (Other)
  Sender: FDA-Public Use
  Company Number: CHPA2012US014712

PATIENT
  Age: 58 Year
  Sex: Female

DRUGS (3)
  1. EXCEDRIN (MIGRAINE) [Suspect]
     Indication: HEAT STROKE
     Dosage: 2 DF, UNK
     Route: 048
  2. EXCEDRIN BACK \+ BODY CAPLETS [Suspect]
     Indication: HEAT STROKE
     Dosage: 2 DF, UNK
     Route: 048
  3. ALLERGY MEDICATION [Concomitant]
     Dosage: UNK, UNK

REACTIONS (8)
  - BLEPHAROSPASM [None]
  - ROAD TRAFFIC ACCIDENT [None]
  - EXPIRED DRUG ADMINISTERED [None]
  - OROMANDIBULAR DYSTONIA [None]
  - HEAD INJURY [None]
  - DYSTONIA [None]
  - OFF LABEL USE [None]
  - MUSCLE SPASMS [None]
